FAERS Safety Report 17720775 (Version 1)
Quarter: 2020Q2

REPORT INFORMATION
  Report Type: Spontaneous
  Country: US (occurrence: US)
  Receive Date: 20200428
  Receipt Date: 20200428
  Transmission Date: 20200714
  Serious: Yes (Other)
  Sender: FDA-Public Use
  Company Number: US-ROCHE-2484422

PATIENT
  Age: 71 Year
  Sex: Male
  Weight: 79.45 kg

DRUGS (1)
  1. AVASTIN [Suspect]
     Active Substance: BEVACIZUMAB
     Indication: COLORECTAL CANCER
     Route: 042
     Dates: start: 20190401

REACTIONS (2)
  - Arthralgia [Unknown]
  - Device related thrombosis [Unknown]

NARRATIVE: CASE EVENT DATE: 201908
